FAERS Safety Report 11199600 (Version 1)
Quarter: 2015Q2

REPORT INFORMATION
  Report Type: Spontaneous
  Country: US (occurrence: None)
  Receive Date: 20150616
  Receipt Date: 20150616
  Transmission Date: 20150821
  Serious: No
  Sender: FDA-Public Use
  Company Number: None

PATIENT
  Sex: Female
  Weight: 54.43 kg

DRUGS (27)
  1. CALCIUM [Concomitant]
     Active Substance: CALCIUM
  2. TYLENOL EXTRA STRENGTH [Concomitant]
     Active Substance: ACETAMINOPHEN
  3. SUDAFED [Concomitant]
     Active Substance: PSEUDOEPHEDRINE HYDROCHLORIDE
  4. VENTOLIN [Concomitant]
     Active Substance: ALBUTEROL SULFATE
  5. NITROGLYCERINE PATCH [Concomitant]
  6. MECLIZINE [Concomitant]
     Active Substance: MECLIZINE\MECLIZINE HYDROCHLORIDE
  7. FLONASE [Concomitant]
     Active Substance: FLUTICASONE PROPIONATE
  8. VIT B [Concomitant]
     Active Substance: VITAMINS
  9. LORAZEPAM. [Concomitant]
     Active Substance: LORAZEPAM
  10. OLANZAPINE. [Concomitant]
     Active Substance: OLANZAPINE
  11. SALINE NASAL SPRAY [Concomitant]
     Active Substance: SODIUM CHLORIDE
  12. LIDOCAINE. [Concomitant]
     Active Substance: LIDOCAINE
  13. TRAMADOL [Concomitant]
     Active Substance: TRAMADOL
  14. EXTENDED RELEASE MUCINEX [Concomitant]
  15. MIRTAZAPINE. [Concomitant]
     Active Substance: MIRTAZAPINE
  16. VITAMIN D3 [Concomitant]
     Active Substance: CHOLECALCIFEROL
  17. ADVAIR HFA [Concomitant]
     Active Substance: FLUTICASONE PROPIONATE\SALMETEROL XINAFOATE
  18. ACTONEL [Concomitant]
     Active Substance: RISEDRONATE SODIUM
  19. CETIRIZINE [Concomitant]
     Active Substance: CETIRIZINE HYDROCHLORIDE
  20. VOLTAREN [Suspect]
     Active Substance: DICLOFENAC SODIUM
  21. TIZANIDINE (TIZANIDINE) [Concomitant]
     Active Substance: TIZANIDINE
  22. CPAP [Concomitant]
     Active Substance: DEVICE
  23. LASIX [Concomitant]
     Active Substance: FUROSEMIDE
  24. COMPLETE SENIOR MULTIVTAMIN [Concomitant]
  25. MAGNESIUM [Concomitant]
     Active Substance: MAGNESIUM
  26. METRO GEL [Concomitant]
  27. FISH OIL [Concomitant]
     Active Substance: FISH OIL

REACTIONS (3)
  - Application site pruritus [None]
  - Application site rash [None]
  - Application site erythema [None]
